FAERS Safety Report 20290275 (Version 1)
Quarter: 2022Q1

REPORT INFORMATION
  Report Type: Spontaneous
  Country: US (occurrence: US)
  Receive Date: 20220104
  Receipt Date: 20220104
  Transmission Date: 20220423
  Serious: Yes (Hospitalization)
  Sender: FDA-Public Use
  Company Number: US-MYLANLABS-2022M1000366

PATIENT
  Age: 45 Year
  Sex: Female

DRUGS (11)
  1. HALOPERIDOL [Suspect]
     Active Substance: HALOPERIDOL
     Indication: Psychomotor hyperactivity
     Dosage: UNK
     Route: 030
  2. QUETIAPINE [Suspect]
     Active Substance: QUETIAPINE
     Indication: Mania
     Dosage: 0.5 MILLIGRAM, BID
     Route: 065
  3. QUETIAPINE [Suspect]
     Active Substance: QUETIAPINE
     Dosage: 2 MILLIGRAM, BID
     Route: 065
  4. CHLORPROMAZINE [Suspect]
     Active Substance: CHLORPROMAZINE
     Indication: Antipsychotic therapy
     Dosage: 50 MILLIGRAM
     Route: 030
  5. LORAZEPAM [Concomitant]
     Active Substance: LORAZEPAM
     Indication: Catatonia
     Dosage: 2 MILLIGRAM, Q6H
     Route: 042
  6. LORAZEPAM [Concomitant]
     Active Substance: LORAZEPAM
     Indication: Psychomotor hyperactivity
     Dosage: 2 MILLIGRAM, Q4H
     Route: 042
  7. VALPROIC ACID [Concomitant]
     Active Substance: VALPROIC ACID
     Indication: Bipolar disorder
     Dosage: UNK
     Route: 065
  8. ZOLPIDEM [Concomitant]
     Active Substance: ZOLPIDEM TARTRATE
     Indication: Catatonia
     Dosage: UNK
     Route: 048
  9. LORAZEPAM [Concomitant]
     Active Substance: LORAZEPAM
     Indication: Product used for unknown indication
     Dosage: 2 MILLIGRAM, Q4H
     Route: 042
  10. LORAZEPAM [Concomitant]
     Active Substance: LORAZEPAM
     Dosage: 2 MILLIGRAM, Q2H
     Route: 042
  11. PHENOBARBITAL [Concomitant]
     Active Substance: PHENOBARBITAL
     Indication: Bipolar disorder
     Dosage: UNK
     Route: 042

REACTIONS (1)
  - Catatonia [Recovered/Resolved]
